FAERS Safety Report 4980305-6 (Version None)
Quarter: 2006Q2

REPORT INFORMATION
  Report Type: 
  Country: None (occurrence: None)
  Receive Date: 20060420
  Receipt Date: 20060420
  Transmission Date: 20061013
  Serious: Yes (Hospitalization)
  Sender: FDA-Public Use
  Company Number: None

PATIENT
  Age: 56 Year
  Sex: Male
  Weight: 82.6 kg

DRUGS (12)
  1. CISPLATIN [Suspect]
  2. CYTARABINE [Suspect]
  3. GUAIFENESIN [Concomitant]
  4. DEXAMETHASONE [Concomitant]
  5. APREPITANT [Concomitant]
  6. DEXAMTHASONE [Concomitant]
  7. PROCHLORPERAZINE MALEATE [Concomitant]
  8. ALLOPURINOL [Concomitant]
  9. LORATADINE [Concomitant]
  10. ACETAMINOPHEN AND HYDROCODONE BITARTRATE [Concomitant]
  11. SENNOSIDES [Concomitant]
  12. DIPHENHYDRAMINE HCL [Concomitant]

REACTIONS (2)
  - NEUTROPENIA [None]
  - PYREXIA [None]
